FAERS Safety Report 16214448 (Version 1)
Quarter: 2019Q2

REPORT INFORMATION
  Report Type: Spontaneous
  Country: NO (occurrence: NO)
  Receive Date: 20190418
  Receipt Date: 20190418
  Transmission Date: 20190711
  Serious: Yes (Other)
  Sender: FDA-Public Use
  Company Number: NO-NOVOPROD-658005

PATIENT
  Age: 70 Year
  Sex: Female

DRUGS (3)
  1. VAGIFEM [Suspect]
     Active Substance: ESTRADIOL
     Indication: PROPHYLAXIS URINARY TRACT INFECTION
     Dosage: 10 ?G, BIW
     Route: 067
     Dates: start: 20171212
  2. IRBESARTAN SANDOZ [Concomitant]
     Active Substance: IRBESARTAN
     Indication: HYPERTENSION
  3. METFORMIN ORIFARM [Concomitant]
     Indication: DIABETES MELLITUS

REACTIONS (4)
  - Papilloma [Unknown]
  - Breast haemorrhage [Unknown]
  - Breast discharge [Unknown]
  - Off label use [Unknown]

NARRATIVE: CASE EVENT DATE: 20171212
